FAERS Safety Report 8901976 (Version 2)
Quarter: 2012Q4

REPORT INFORMATION
  Report Type: 
  Country: JP (occurrence: JP)
  Receive Date: 20121112
  Receipt Date: 20121116
  Transmission Date: 20130627
  Serious: Yes (Other)
  Sender: FDA-Public Use
  Company Number: JP-ASTRAZENECA-2012SE84458

PATIENT
  Age: 37 Year
  Sex: Female

DRUGS (6)
  1. OMEPRAZOLE [Suspect]
     Indication: GASTROOESOPHAGEAL REFLUX DISEASE
     Route: 048
     Dates: start: 20121031
  2. THEOPHYLLINE [Suspect]
     Dosage: Dose unknown
     Route: 065
     Dates: start: 2012, end: 20121102
  3. MEILAX [Concomitant]
     Dosage: Dose unknown
     Route: 065
     Dates: start: 2012
  4. SINGULAIR [Concomitant]
     Dosage: Dose unknown
     Route: 065
     Dates: start: 2012, end: 20121102
  5. ALESION [Concomitant]
     Dosage: Dose unknown
     Route: 065
     Dates: start: 20121031
  6. MUCODYNE [Concomitant]
     Dosage: Dose unknown
     Route: 065
     Dates: start: 20121031

REACTIONS (1)
  - Blood creatine phosphokinase increased [Recovered/Resolved]
